FAERS Safety Report 4551670-9 (Version None)
Quarter: 2005Q1

REPORT INFORMATION
  Report Type: 
  Country: None (occurrence: None)
  Receive Date: 20050112
  Receipt Date: 20050104
  Transmission Date: 20050727
  Serious: Yes (Life-Threatening, Hospitalization)
  Sender: FDA-Public Use
  Company Number: 2005AC00019

PATIENT
  Age: 3 Year
  Sex: Male

DRUGS (1)
  1. BUPIVACAINE [Suspect]
     Indication: LOCAL ANAESTHESIA

REACTIONS (5)
  - BLOOD PRESSURE DECREASED [None]
  - CONVULSION [None]
  - MEDICATION ERROR [None]
  - OVERDOSE [None]
  - PHARMACEUTICAL PRODUCT COMPLAINT [None]
